FAERS Safety Report 5237319-0 (Version None)
Quarter: 2007Q1

REPORT INFORMATION
  Report Type: 
  Country: None (occurrence: None)
  Receive Date: 20070213
  Receipt Date: 20070201
  Transmission Date: 20070707
  Serious: Yes (Hospitalization)
  Sender: FDA-Public Use
  Company Number: HQWYE276202FEB07

PATIENT
  Age: 70 Year
  Sex: Female

DRUGS (1)
  1. EUPANTOL [Suspect]
     Route: 048
     Dates: start: 20061129, end: 20061203

REACTIONS (2)
  - CYTOLYTIC HEPATITIS [None]
  - THROMBOCYTOPENIA [None]
